FAERS Safety Report 5286822-6 (Version None)
Quarter: 2007Q1

REPORT INFORMATION
  Report Type: 
  Country: None (occurrence: None)
  Receive Date: 20070329
  Receipt Date: 20070316
  Transmission Date: 20070707
  Serious: Yes (Life-Threatening, Hospitalization)
  Sender: FDA-Public Use
  Company Number: B0461279A

PATIENT
  Age: 34 Year
  Sex: Male

DRUGS (2)
  1. PAXIL [Suspect]
     Indication: SCHIZOPHRENIA
     Dosage: 20 MG, PER DAY; ORAL
     Route: 048
  2. OLANZAPINE [Suspect]
     Indication: SCHIZOPHRENIA
     Dosage: 15 MG PER DAY; ORAL
     Route: 048

REACTIONS (2)
  - CARDIAC FAILURE [None]
  - NEUROLEPTIC MALIGNANT SYNDROME [None]
